FAERS Safety Report 19497668 (Version 3)
Quarter: 2021Q3

REPORT INFORMATION
  Report Type: Spontaneous
  Country: US (occurrence: US)
  Receive Date: 20210706
  Receipt Date: 20210910
  Transmission Date: 20211014
  Serious: Yes (Hospitalization, Other)
  Sender: FDA-Public Use
  Company Number: US-PFIZER INC-2021534813

PATIENT
  Age: 65 Year
  Sex: Female
  Weight: 63.04 kg

DRUGS (13)
  1. FASLODEX [Concomitant]
     Active Substance: FULVESTRANT
     Dosage: UNK MG/ML
  2. FLUCONAZOLE. [Concomitant]
     Active Substance: FLUCONAZOLE
  3. NYSTATIN. [Concomitant]
     Active Substance: NYSTATIN
  4. IBRANCE [Suspect]
     Active Substance: PALBOCICLIB
     Dosage: 75 MG
  5. METRONIDAZOLE. [Concomitant]
     Active Substance: METRONIDAZOLE
  6. DEXAMETHASONE. [Concomitant]
     Active Substance: DEXAMETHASONE
  7. STOOL SOFTENER (DOCUSATE) [Concomitant]
     Active Substance: DOCUSATE
  8. ERYTHROMYCIN. [Concomitant]
     Active Substance: ERYTHROMYCIN
  9. OXYCODONE AND ACETAMINOPHEN [Concomitant]
     Active Substance: ACETAMINOPHEN\OXYCODONE HYDROCHLORIDE
  10. SERTRALINE HCL [Concomitant]
     Active Substance: SERTRALINE HYDROCHLORIDE
  11. IBRANCE [Suspect]
     Active Substance: PALBOCICLIB
     Indication: BREAST CANCER FEMALE
     Dosage: 125 MG, CYCLIC: DAILY (FOR 21 DAYS)
     Route: 048
     Dates: start: 202104
  12. IBRANCE [Suspect]
     Active Substance: PALBOCICLIB
     Dosage: 125 MG, CYCLIC (DAYS 1 THROUGH 21 OF 28 DAY CYCLE)
     Route: 048
     Dates: start: 202104
  13. CYCLOBENZAPRINE. [Concomitant]
     Active Substance: CYCLOBENZAPRINE

REACTIONS (7)
  - Hypoaesthesia [Unknown]
  - Feeling cold [Unknown]
  - White blood cell count decreased [Unknown]
  - Peripheral swelling [Unknown]
  - Femur fracture [Unknown]
  - Neoplasm progression [Unknown]
  - White blood cell count abnormal [Unknown]
